FAERS Safety Report 14377162 (Version 1)
Quarter: 2018Q1

REPORT INFORMATION
  Report Type: Spontaneous
  Country: US (occurrence: US)
  Receive Date: 20180111
  Receipt Date: 20180111
  Transmission Date: 20180509
  Serious: No
  Sender: FDA-Public Use
  Company Number: US-DRREDDYS-USA/USA/17/0090520

PATIENT
  Age: 59 Year
  Sex: Female
  Weight: 60.32 kg

DRUGS (8)
  1. POTASSIUM [Concomitant]
     Active Substance: POTASSIUM
     Indication: LIMB DISCOMFORT
     Route: 065
     Dates: start: 20170403
  2. TORSEMIDE. [Concomitant]
     Active Substance: TORSEMIDE
     Indication: LIMB DISCOMFORT
     Route: 065
     Dates: start: 20170403
  3. PROTONIX [Concomitant]
     Active Substance: PANTOPRAZOLE SODIUM
     Indication: PERFORATED ULCER
     Route: 065
  4. NICOTINE. [Suspect]
     Active Substance: NICOTINE
     Indication: SMOKING CESSATION THERAPY
     Route: 062
     Dates: start: 201701
  5. SOMA [Concomitant]
     Active Substance: CARISOPRODOL
     Indication: PRODUCT USED FOR UNKNOWN INDICATION
     Route: 065
  6. LIPITOR [Concomitant]
     Active Substance: ATORVASTATIN CALCIUM
     Indication: CAROTID ARTERY THROMBOSIS
     Route: 065
  7. NICOTINE. [Suspect]
     Active Substance: NICOTINE
     Route: 065
  8. XANAX [Concomitant]
     Active Substance: ALPRAZOLAM
     Indication: PRODUCT USED FOR UNKNOWN INDICATION
     Route: 065

REACTIONS (6)
  - Treatment noncompliance [Unknown]
  - Overdose [Unknown]
  - Skin disorder [Unknown]
  - Product quality issue [Unknown]
  - Stasis dermatitis [Unknown]
  - Headache [Recovered/Resolved]

NARRATIVE: CASE EVENT DATE: 201701
